FAERS Safety Report 10004299 (Version 1)
Quarter: 2014Q1

REPORT INFORMATION
  Report Type: Spontaneous
  Country: US (occurrence: US)
  Receive Date: 20140312
  Receipt Date: 20140312
  Transmission Date: 20141002
  Serious: No
  Sender: FDA-Public Use
  Company Number: US-PFIZER INC-2014071495

PATIENT
  Age: 58 Year
  Sex: Female
  Weight: 87.08 kg

DRUGS (5)
  1. EFFEXOR [Suspect]
     Dosage: UNK
  2. EFFEXOR XR [Suspect]
     Indication: DEPRESSION
     Dosage: 150 MG, DAILY
     Route: 048
  3. EFFEXOR XR [Suspect]
     Dosage: 150 MG, ALTERNATE DAY (TAKING FULL EVERY OTHER DAY)
     Route: 048
  4. EFFEXOR XR [Suspect]
     Dosage: 150 MG, TAKING FULL EVERY THIRD DAY
     Route: 048
  5. EFFEXOR XR [Suspect]
     Dosage: TAKING HALF EVERY OTHER DAY
     Route: 048

REACTIONS (5)
  - Dizziness [Recovered/Resolved]
  - Nausea [Recovering/Resolving]
  - Activities of daily living impaired [Unknown]
  - Dizziness [Not Recovered/Not Resolved]
  - Wrong technique in drug usage process [Unknown]
